FAERS Safety Report 5247051-5 (Version None)
Quarter: 2007Q1

REPORT INFORMATION
  Report Type: 
  Country: None (occurrence: None)
  Receive Date: 20070226
  Receipt Date: 20070222
  Transmission Date: 20070707
  Serious: Yes (Other)
  Sender: FDA-Public Use
  Company Number: GB-ALLERGAN-0701797US

PATIENT
  Sex: Female

DRUGS (2)
  1. PRED FORTE [Suspect]
     Indication: POSTOPERATIVE CARE
     Route: 047
  2. ACETAZOLAMIDE [Concomitant]
     Indication: POST PROCEDURAL OEDEMA

REACTIONS (2)
  - SCOTOMA [None]
  - VISUAL ACUITY REDUCED [None]
